FAERS Safety Report 10414055 (Version 1)
Quarter: 2014Q3

REPORT INFORMATION
  Report Type: Spontaneous
  Country: US (occurrence: None)
  Receive Date: 20140826
  Receipt Date: 20140826
  Transmission Date: 20150326
  Serious: Yes (Death)
  Sender: FDA-Public Use
  Company Number: 2014SMT00053

PATIENT

DRUGS (1)
  1. PROSHIELD PLUS SKIN PROTECTANT [Suspect]
     Active Substance: DIMETHICONE

REACTIONS (1)
  - Death [None]
